FAERS Safety Report 5676657-4 (Version None)
Quarter: 2008Q1

REPORT INFORMATION
  Report Type: 
  Country: None (occurrence: None)
  Receive Date: 20080320
  Receipt Date: 20080320
  Transmission Date: 20080703
  Serious: No
  Sender: FDA-Public Use
  Company Number: None

PATIENT
  Age: 53 Year
  Sex: Female
  Weight: 45.3597 kg

DRUGS (5)
  1. SERTRALINE [Suspect]
     Indication: DEPRESSION
     Dosage: 100MG DAILY PO
     Route: 048
     Dates: start: 20070409, end: 20070423
  2. OGEN [Concomitant]
  3. PROMETRIUM [Concomitant]
  4. DYAZIDE [Concomitant]
  5. MOMETASONE FUROATE [Concomitant]

REACTIONS (4)
  - DIZZINESS [None]
  - HEADACHE [None]
  - SOMNOLENCE [None]
  - THERAPEUTIC RESPONSE UNEXPECTED WITH DRUG SUBSTITUTION [None]
